FAERS Safety Report 15716683 (Version 1)
Quarter: 2018Q4

REPORT INFORMATION
  Report Type: Spontaneous
  Country: GB (occurrence: GB)
  Receive Date: 20181213
  Receipt Date: 20181213
  Transmission Date: 20190205
  Serious: Yes (Other)
  Sender: FDA-Public Use
  Company Number: GB-SUN PHARMACEUTICAL INDUSTRIES LTD-2018RR-193480

PATIENT
  Age: 75 Year
  Sex: Male
  Weight: 84 kg

DRUGS (5)
  1. CLARITHROMYCIN. [Suspect]
     Active Substance: CLARITHROMYCIN
     Indication: COUGH
     Dosage: 500 MILLIGRAM
     Route: 048
     Dates: start: 20181109, end: 20181114
  2. PERINDOPRIL [Suspect]
     Active Substance: PERINDOPRIL
     Indication: HYPERTENSION
     Route: 065
  3. ATORVASTATIN [Concomitant]
     Active Substance: ATORVASTATIN
     Indication: PRODUCT USED FOR UNKNOWN INDICATION
     Dosage: DISCONTINUED WHILE TAKING CLARITHROMYCIN ()
     Route: 065
  4. FELODIPINE. [Suspect]
     Active Substance: FELODIPINE
     Indication: HYPERTENSION
     Dosage: 2.5 MILLIGRAM
     Route: 065
  5. TAMSULOSIN [Concomitant]
     Active Substance: TAMSULOSIN
     Dosage: ()
     Route: 065

REACTIONS (2)
  - Blood pressure decreased [Recovered/Resolved]
  - Fall [Unknown]

NARRATIVE: CASE EVENT DATE: 20181111
